FAERS Safety Report 10090400 (Version 2)
Quarter: 2014Q2

REPORT INFORMATION
  Report Type: Spontaneous
  Country: BR (occurrence: BR)
  Receive Date: 20140421
  Receipt Date: 20140620
  Transmission Date: 20141212
  Serious: Yes (Other)
  Sender: FDA-Public Use
  Company Number: BR-ASTRAZENECA-2014SE25967

PATIENT
  Age: 78 Year
  Sex: Female
  Weight: 73 kg

DRUGS (6)
  1. SELOZOK [Suspect]
     Indication: ARRHYTHMIA
     Route: 048
     Dates: start: 2010
  2. SELOZOK [Suspect]
     Indication: ARRHYTHMIA
     Route: 048
  3. SELOZOK [Suspect]
     Indication: ARRHYTHMIA
     Route: 048
     Dates: start: 201405
  4. XARELTO [Concomitant]
     Indication: ANTICOAGULANT THERAPY
     Dosage: DAILY
     Route: 048
  5. SYNTHROID [Concomitant]
     Indication: THYROID DISORDER
     Dosage: DAILY
     Route: 048
  6. TORLOS [Concomitant]
     Dosage: DAILY
     Route: 048

REACTIONS (2)
  - Drug ineffective [Unknown]
  - Arrhythmia [Recovered/Resolved]
